FAERS Safety Report 7642342-2 (Version None)
Quarter: 2011Q3

REPORT INFORMATION
  Report Type: 
  Country: None (occurrence: None)
  Receive Date: 20110728
  Receipt Date: 20110715
  Transmission Date: 20111222
  Serious: Yes (Other)
  Sender: FDA-Public Use
  Company Number: GB-MYLANLABS-2011S1014724

PATIENT
  Age: 70 Year
  Sex: Male

DRUGS (3)
  1. ALFUZOSIN HCL [Concomitant]
     Indication: URINE FLOW DECREASED
  2. METFORMIN HCL [Suspect]
     Indication: PRODUCT USED FOR UNKNOWN INDICATION
  3. SIMVASTATIN [Concomitant]
     Indication: PRODUCT USED FOR UNKNOWN INDICATION

REACTIONS (5)
  - ORTHOSTATIC HYPOTENSION [None]
  - PROSTATOMEGALY [None]
  - BLADDER OBSTRUCTION [None]
  - BLOOD PRESSURE FLUCTUATION [None]
  - TREMOR [None]
